FAERS Safety Report 11287820 (Version 1)
Quarter: 2015Q3

REPORT INFORMATION
  Report Type: Spontaneous
  Country: US (occurrence: None)
  Receive Date: 20150720
  Receipt Date: 20150720
  Transmission Date: 20151125
  Serious: No
  Sender: FDA-Public Use
  Company Number: None

PATIENT
  Age: 37 Year
  Sex: Female
  Weight: 52.16 kg

DRUGS (6)
  1. AZELASTINE HYDROCHLORIDE SPRAY [Concomitant]
  2. CRANBERRY. [Concomitant]
     Active Substance: CRANBERRY
  3. SULFAMETHOXAZOLE-TMP DS [Suspect]
     Active Substance: SULFAMETHOXAZOLE\TRIMETHOPRIM
     Indication: PROPHYLAXIS URINARY TRACT INFECTION
     Dosage: 1 PILL AFTER SEX
     Route: 048
     Dates: start: 20150614, end: 20150615
  4. MULTIVITAMIN [Concomitant]
     Active Substance: VITAMINS
  5. BIOTIN [Concomitant]
     Active Substance: BIOTIN
  6. TOPIRAMATE. [Concomitant]
     Active Substance: TOPIRAMATE

REACTIONS (8)
  - Sensory disturbance [None]
  - Musculoskeletal pain [None]
  - Neck pain [None]
  - Eye pain [None]
  - Herpes zoster [None]
  - Drug hypersensitivity [None]
  - Chest pain [None]
  - Skin burning sensation [None]

NARRATIVE: CASE EVENT DATE: 20150615
